FAERS Safety Report 24180459 (Version 2)
Quarter: 2025Q3

REPORT INFORMATION
  Report Type: Spontaneous
  Country: MX (occurrence: MX)
  Receive Date: 20240806
  Receipt Date: 20250716
  Transmission Date: 20251020
  Serious: Yes (Hospitalization, Other)
  Sender: ELI LILLY AND COMPANY
  Company Number: MX-ELI_LILLY_AND_COMPANY-MX202404017037

PATIENT
  Sex: Female

DRUGS (2)
  1. FORTEO [Suspect]
     Active Substance: TERIPARATIDE
     Indication: Product used for unknown indication
     Route: 065
  2. FORTEO [Suspect]
     Active Substance: TERIPARATIDE
     Indication: Product used for unknown indication
     Route: 065

REACTIONS (7)
  - Hypocalcaemia [Unknown]
  - Endocrine ophthalmopathy [Unknown]
  - Eye infection [Unknown]
  - Benign neoplasm of eye [Unknown]
  - Eyelid calcification [Unknown]
  - Injection site haemorrhage [Unknown]
  - Nausea [Unknown]
